FAERS Safety Report 17487020 (Version 6)
Quarter: 2020Q2

REPORT INFORMATION
  Report Type: Report from Study
  Country: CO (occurrence: CO)
  Receive Date: 20200303
  Receipt Date: 20200522
  Transmission Date: 20200713
  Serious: Yes (Death, Hospitalization, Other)
  Sender: FDA-Public Use
  Company Number: CO-ASTELLAS-2019US027088

PATIENT
  Age: 78 Year
  Sex: Male
  Weight: 65 kg

DRUGS (2)
  1. ENZALUTAMIDE [Suspect]
     Active Substance: ENZALUTAMIDE
     Route: 048
     Dates: start: 20200227
  2. ENZALUTAMIDE [Suspect]
     Active Substance: ENZALUTAMIDE
     Indication: HORMONE-REFRACTORY PROSTATE CANCER
     Route: 048
     Dates: start: 20190419, end: 20200111

REACTIONS (14)
  - Dizziness [Recovered/Resolved]
  - Intestinal obstruction [Recovered/Resolved]
  - Abdominal neoplasm [Recovered/Resolved]
  - Decreased appetite [Not Recovered/Not Resolved]
  - Influenza [Not Recovered/Not Resolved]
  - Choking [Not Recovered/Not Resolved]
  - Lung disorder [Recovering/Resolving]
  - Psychiatric symptom [Not Recovered/Not Resolved]
  - Dyspnoea [Not Recovered/Not Resolved]
  - Intentional dose omission [Unknown]
  - Vertigo [Recovered/Resolved]
  - Fatigue [Not Recovered/Not Resolved]
  - Depressed mood [Not Recovered/Not Resolved]
  - Pneumonia [Fatal]

NARRATIVE: CASE EVENT DATE: 2019
